FAERS Safety Report 13060640 (Version 2)
Quarter: 2016Q4

REPORT INFORMATION
  Report Type: Report from Study
  Country: JP (occurrence: JP)
  Receive Date: 20161224
  Receipt Date: 20161227
  Transmission Date: 20170207
  Serious: Yes (Life-Threatening, Hospitalization)
  Sender: FDA-Public Use
  Company Number: JP-BAUSCH-BL-2016-032067

PATIENT
  Age: 35 Year
  Sex: Male
  Weight: 68.4 kg

DRUGS (20)
  1. CRESTOR OD [Concomitant]
     Indication: PRODUCT USED FOR UNKNOWN INDICATION
     Dates: start: 20160720
  2. LANSOPRAZOLE OD [Concomitant]
     Active Substance: LANSOPRAZOLE
     Indication: PRODUCT USED FOR UNKNOWN INDICATION
     Dates: start: 20161121
  3. TRAMAL [Concomitant]
     Active Substance: TRAMADOL
     Indication: PRODUCT USED FOR UNKNOWN INDICATION
     Dates: start: 20161121
  4. ONO-5371 [Suspect]
     Active Substance: METYROSINE
     Route: 048
     Dates: start: 20160818, end: 20161017
  5. TEARBALANCE [Concomitant]
     Active Substance: HYALURONATE SODIUM
     Indication: PRODUCT USED FOR UNKNOWN INDICATION
     Dates: start: 20160129
  6. ONO-5371 [Suspect]
     Active Substance: METYROSINE
     Route: 048
     Dates: start: 20160815, end: 20160817
  7. ONO-5371 [Suspect]
     Active Substance: METYROSINE
     Route: 048
     Dates: start: 20161113, end: 20161116
  8. LOXOPROFEN [Concomitant]
     Active Substance: LOXOPROFEN
     Indication: PRODUCT USED FOR UNKNOWN INDICATION
     Dates: start: 20160517
  9. KETOPROFEN. [Concomitant]
     Active Substance: KETOPROFEN
     Indication: PRODUCT USED FOR UNKNOWN INDICATION
     Dates: start: 20161121
  10. ONO-5371 [Suspect]
     Active Substance: METYROSINE
     Route: 048
     Dates: start: 20161110, end: 20161112
  11. ONO-5371 [Suspect]
     Active Substance: METYROSINE
     Route: 048
     Dates: start: 20161117
  12. ONO-5371 [Suspect]
     Active Substance: METYROSINE
     Route: 048
     Dates: start: 20160201, end: 20160814
  13. ONO-5371 [Suspect]
     Active Substance: METYROSINE
     Route: 048
     Dates: start: 20161107, end: 20161109
  14. DOXAZOSIN [Concomitant]
     Active Substance: DOXAZOSIN\DOXAZOSIN MESYLATE
     Indication: PRODUCT USED FOR UNKNOWN INDICATION
     Dates: start: 20161106
  15. MAGNESIUM OXIDE. [Concomitant]
     Active Substance: MAGNESIUM OXIDE
     Indication: PRODUCT USED FOR UNKNOWN INDICATION
  16. AMLODIPINE [Concomitant]
     Active Substance: AMLODIPINE BESYLATE
     Indication: PRODUCT USED FOR UNKNOWN INDICATION
     Dates: start: 20161122
  17. SODIUM PICOSULFATE [Concomitant]
     Active Substance: SODIUM PICOSULFATE
     Indication: PRODUCT USED FOR UNKNOWN INDICATION
     Dates: start: 20160201
  18. ONO-5371 [Suspect]
     Active Substance: METYROSINE
     Indication: PHAEOCHROMOCYTOMA
     Route: 048
     Dates: start: 20160129, end: 20160131
  19. URSODEOXYCHOLIC ACID [Concomitant]
     Active Substance: URSODIOL
     Indication: PRODUCT USED FOR UNKNOWN INDICATION
  20. INDERAL [Concomitant]
     Active Substance: PROPRANOLOL HYDROCHLORIDE
     Indication: PRODUCT USED FOR UNKNOWN INDICATION
     Dates: start: 20161105

REACTIONS (1)
  - Radiation sickness syndrome [Not Recovered/Not Resolved]

NARRATIVE: CASE EVENT DATE: 20161209
